FAERS Safety Report 14281320 (Version 9)
Quarter: 2019Q2

REPORT INFORMATION
  Report Type: Report from Study
  Country: JP (occurrence: JP)
  Receive Date: 20171213
  Receipt Date: 20190502
  Transmission Date: 20190711
  Serious: Yes (Hospitalization, Other)
  Sender: FDA-Public Use
  Company Number: JP-BRISTOL-MYERS SQUIBB COMPANY-BMS-2017-063461

PATIENT
  Age: 76 Year
  Sex: Male
  Weight: 60 kg

DRUGS (4)
  1. METHYLPREDNISOLONE NA SUCCINATE [Suspect]
     Active Substance: METHYLPREDNISOLONE SODIUM SUCCINATE
     Indication: COLITIS
     Dosage: UNK
     Route: 065
     Dates: start: 2017
  2. PREDNISOLONE. [Suspect]
     Active Substance: PREDNISOLONE
     Indication: POLYMYALGIA RHEUMATICA
     Dosage: 15 MG, UNK
     Route: 065
     Dates: start: 201701
  3. NIVOLUMAB [Suspect]
     Active Substance: NIVOLUMAB
     Indication: MALIGNANT MELANOMA
     Dosage: 3 MG/KG, UNK
     Route: 041
     Dates: start: 20161110, end: 20170413
  4. YERVOY [Suspect]
     Active Substance: IPILIMUMAB
     Indication: MALIGNANT MELANOMA
     Dosage: 3 MG/KG, UNK
     Route: 041
     Dates: start: 20170601, end: 20170803

REACTIONS (10)
  - Malignant neoplasm progression [Unknown]
  - Thyroid function test abnormal [Recovering/Resolving]
  - Constipation [Recovered/Resolved]
  - Ileus [Recovered/Resolved]
  - Autonomic neuropathy [Recovered/Resolved]
  - Colitis [Recovered/Resolved]
  - Renal disorder [Recovered/Resolved]
  - Polymyalgia rheumatica [Recovering/Resolving]
  - Cytomegalovirus enterocolitis [Not Recovered/Not Resolved]
  - Spinal stenosis [Not Recovered/Not Resolved]

NARRATIVE: CASE EVENT DATE: 2017
